FAERS Safety Report 9293798 (Version 1)
Quarter: 2013Q2

REPORT INFORMATION
  Report Type: Report from Study
  Country: CA (occurrence: CA)
  Receive Date: 20130516
  Receipt Date: 20130516
  Transmission Date: 20140414
  Serious: Yes (Other)
  Sender: FDA-Public Use
  Company Number: CA-JNJFOC-20130203003

PATIENT
  Age: 44 Year
  Sex: Female
  Weight: 95.4 kg

DRUGS (3)
  1. REMICADE [Suspect]
     Indication: PSORIASIS
     Route: 042
     Dates: start: 20101103
  2. REMICADE [Suspect]
     Indication: PSORIATIC ARTHROPATHY
     Route: 042
     Dates: start: 20101103
  3. APRI [Concomitant]
     Route: 065

REACTIONS (5)
  - Surgery [Unknown]
  - Skin warm [Unknown]
  - Erythema [Unknown]
  - Local swelling [Unknown]
  - Secretion discharge [Unknown]
